FAERS Safety Report 4274412-3 (Version None)
Quarter: 2004Q1

REPORT INFORMATION
  Report Type: 
  Country: None (occurrence: None)
  Receive Date: 20040120
  Receipt Date: 20040106
  Transmission Date: 20041129
  Serious: Yes (Death, Other)
  Sender: FDA-Public Use
  Company Number: WAES 0401USA00541

PATIENT
  Age: 40 Year
  Sex: Female

DRUGS (3)
  1. LASILIX [Concomitant]
  2. COZAAR [Suspect]
     Indication: HYPERTENSION
     Dates: start: 19970101
  3. COZAAR [Suspect]
     Indication: CARDIAC FAILURE
     Dates: start: 19970101

REACTIONS (5)
  - AGEUSIA [None]
  - CARDIAC FAILURE [None]
  - DEATH [None]
  - DYSARTHRIA [None]
  - PRESCRIBED OVERDOSE [None]
